FAERS Safety Report 16784515 (Version 2)
Quarter: 2019Q3

REPORT INFORMATION
  Report Type: Report from Study
  Country: BE (occurrence: BE)
  Receive Date: 20190909
  Receipt Date: 20190923
  Transmission Date: 20191005
  Serious: Yes (Hospitalization)
  Sender: FDA-Public Use
  Company Number: BE-ROCHE-2394364

PATIENT
  Age: 40 Year
  Sex: Female
  Weight: 98 kg

DRUGS (16)
  1. NAB-PACLITAXEL [Suspect]
     Active Substance: PACLITAXEL
     Indication: TRIPLE NEGATIVE BREAST CANCER
     Dosage: MOST RECENT DOSE ON 09/AUG/2019, 196 MG
     Route: 042
     Dates: start: 20190513
  2. DEXAMETHASONE. [Concomitant]
     Active Substance: DEXAMETHASONE
     Route: 042
     Dates: start: 20190826
  3. CICAPLAST [Concomitant]
     Indication: ERYTHEMA
     Route: 065
     Dates: start: 20190702
  4. ONDANSETRON [Concomitant]
     Active Substance: ONDANSETRON
     Route: 065
     Dates: start: 20190826
  5. CALMIDERM [Concomitant]
     Indication: RASH
     Route: 065
     Dates: start: 20190516
  6. ISOBETADINE [Concomitant]
     Route: 065
     Dates: start: 20190827
  7. ATEZOLIZUMAB. [Suspect]
     Active Substance: ATEZOLIZUMAB
     Indication: TRIPLE NEGATIVE BREAST CANCER
     Dosage: MOST RECENT DOSE ON 16/AUG/2019
     Route: 042
     Dates: start: 20190513
  8. CYCLOPHOSPHAMIDE. [Suspect]
     Active Substance: CYCLOPHOSPHAMIDE
     Indication: TRIPLE NEGATIVE BREAST CANCER
     Dosage: DATE OF MOST RECENT DOSE OF CYCLOPHOSPHAMIDE PRIOR TO AE ONSET 16/AUG/2019
     Route: 042
     Dates: start: 20190816
  9. INNOHEP [Concomitant]
     Active Substance: TINZAPARIN SODIUM
     Route: 065
     Dates: start: 20190826
  10. TRAZOLAN [Concomitant]
     Active Substance: TRAZODONE HYDROCHLORIDE
     Indication: DEPRESSION
     Route: 065
     Dates: start: 20151101
  11. DERMOVAT [CLOBETASOL PROPIONATE] [Concomitant]
     Indication: RASH
     Dosage: DOSE: 1 UNIT: U
     Route: 061
     Dates: start: 20190702
  12. APREPITANT. [Concomitant]
     Active Substance: APREPITANT
     Route: 065
     Dates: start: 20190826
  13. DOXORUBICIN [Suspect]
     Active Substance: DOXORUBICIN
     Indication: TRIPLE NEGATIVE BREAST CANCER
     Dosage: DATE OF MOST RECENT DOSE OF DOXORUBICIN PRIOR TO AE ONSET: 16/AUG/2019
     Route: 042
     Dates: start: 20190816
  14. XYZALL [Concomitant]
     Active Substance: LEVOCETIRIZINE DIHYDROCHLORIDE
     Indication: RASH
     Route: 065
     Dates: start: 20190520
  15. RIVOTRIL [Concomitant]
     Active Substance: CLONAZEPAM
     Indication: MYALGIA
     Route: 065
     Dates: start: 20190712
  16. CLONAZONE [Concomitant]
     Indication: NAIL DISORDER
     Route: 065
     Dates: start: 20190816, end: 20190826

REACTIONS (1)
  - Stomatitis [Recovered/Resolved]

NARRATIVE: CASE EVENT DATE: 20190824
